FAERS Safety Report 7794209-7 (Version None)
Quarter: 2011Q3

REPORT INFORMATION
  Report Type: 
  Country: None (occurrence: None)
  Receive Date: 20110929
  Receipt Date: 20110921
  Transmission Date: 20111222
  Serious: Yes (Hospitalization)
  Sender: FDA-Public Use
  Company Number: 1051865

PATIENT
  Age: 63 Year
  Sex: Female

DRUGS (5)
  1. CARBOPLATIN [Suspect]
     Indication: OVARIAN CANCER
     Dosage: 612 MG, CYCLIC, INTRAVENOUS (NOT OTHERWISE SPECIFIED)
     Route: 042
     Dates: start: 20110530, end: 20110711
  2. DEXAMETHASONE SODIUM PHOSPHATE [Concomitant]
  3. (NAVOBAN) [Concomitant]
  4. (RANIDIL) [Concomitant]
  5. TAXOL [Concomitant]

REACTIONS (4)
  - LARYNGOSPASM [None]
  - PRURITUS [None]
  - HYPERSENSITIVITY [None]
  - ERYTHEMA [None]
